FAERS Safety Report 8785173 (Version 1)
Quarter: 2012Q4

REPORT INFORMATION
  Report Type: 
  Country: IT (occurrence: IT)
  Receive Date: 20120914
  Receipt Date: 20120914
  Transmission Date: 20130627
  Serious: Yes (Other)
  Sender: FDA-Public Use
  Company Number: IT-JNJFOC-20120901437

PATIENT

DRUGS (2)
  1. QUIXIL [Suspect]
     Indication: HAEMOSTASIS
     Route: 061
  2. LOCAL HAEMOSTATICS [Suspect]
     Indication: HAEMOSTASIS
     Route: 050

REACTIONS (1)
  - Venous thrombosis limb [Unknown]
